FAERS Safety Report 5300571-7 (Version None)
Quarter: 2007Q2

REPORT INFORMATION
  Report Type: 
  Country: None (occurrence: None)
  Receive Date: 20070418
  Receipt Date: 20070413
  Transmission Date: 20071010
  Serious: Yes (Hospitalization)
  Sender: FDA-Public Use
  Company Number: US-GLAXOSMITHKLINE-A0647203A

PATIENT
  Age: 46 Year
  Sex: Female

DRUGS (4)
  1. LAMICTAL [Suspect]
     Indication: ANXIETY
     Dosage: 200MG PER DAY
     Route: 048
  2. VALIUM [Concomitant]
  3. SYNTHROID [Concomitant]
  4. KLONOPIN [Concomitant]

REACTIONS (1)
  - DYSPNOEA [None]
